FAERS Safety Report 9303521 (Version 2)
Quarter: 2013Q2

REPORT INFORMATION
  Report Type: Spontaneous
  Country: US (occurrence: US)
  Receive Date: 20130522
  Receipt Date: 20130625
  Transmission Date: 20140414
  Serious: No
  Sender: FDA-Public Use
  Company Number: US-PFIZER INC-2013152239

PATIENT
  Age: 59 Year
  Sex: Male
  Weight: 172 kg

DRUGS (15)
  1. NAVANE [Suspect]
     Indication: PSYCHOTIC DISORDER
     Dosage: 10 MG, 3X/DAY
     Dates: start: 1978
  2. NAVANE [Suspect]
     Dosage: UNK
  3. PAXIL [Concomitant]
     Dosage: UNK
  4. TRILEPTAL [Concomitant]
     Dosage: UNK
  5. KLONOPIN [Concomitant]
     Dosage: UNK
  6. METOPROLOL [Concomitant]
     Dosage: UNK
  7. HYZAAR [Concomitant]
     Dosage: UNK
  8. KLOR-CON [Concomitant]
     Dosage: UNK
  9. ASPIRIN [Concomitant]
     Dosage: UNK
  10. ABILIFY [Concomitant]
     Dosage: UNK
  11. LASIX [Concomitant]
     Indication: HYPERTENSION
     Dosage: UNK
  12. TAMSULOSIN [Concomitant]
     Indication: PROSTATIC DISORDER
     Dosage: UNK
  13. LEVOTHYROXINE [Concomitant]
     Indication: HYPOTHYROIDISM
     Dosage: UNK
  14. GERITOL [Concomitant]
     Indication: VITAMIN SUPPLEMENTATION
     Dosage: UNK
  15. RANITIDINE [Concomitant]
     Indication: GASTROOESOPHAGEAL REFLUX DISEASE
     Dosage: UNK

REACTIONS (3)
  - Hypothyroidism [Unknown]
  - Hypertension [Unknown]
  - Weight increased [Unknown]
